FAERS Safety Report 17409997 (Version 4)
Quarter: 2020Q1

REPORT INFORMATION
  Report Type: Spontaneous
  Country: US (occurrence: US)
  Receive Date: 20200212
  Receipt Date: 20200302
  Transmission Date: 20200409
  Serious: Yes (Hospitalization, Other)
  Sender: FDA-Public Use
  Company Number: US-PFIZER INC-2019210699

PATIENT
  Age: 81 Year
  Sex: Female
  Weight: 55 kg

DRUGS (9)
  1. METHOTREXATE. [Concomitant]
     Active Substance: METHOTREXATE
     Indication: AUTOIMMUNE DISORDER
     Dosage: 15 MG, UNK (SIX PILLS OF 2.5MG)
  2. LYRICA [Suspect]
     Active Substance: PREGABALIN
     Indication: ABDOMINAL PAIN UPPER
     Dosage: 25 MG, 2X/DAY (IN THE MORNING AND AT NIGHT)
     Route: 048
  3. LYRICA [Suspect]
     Active Substance: PREGABALIN
     Indication: PARTIAL SEIZURES
     Dosage: 26 MG, 3X/DAY (1 CAPSULE IN AM, 2 CAPSULES AT NIGHT)
     Route: 048
  4. LYRICA [Suspect]
     Active Substance: PREGABALIN
     Dosage: 75 MG, DAILY (25MG IN THE MORNING AND 50MG AT NIGHT)
     Dates: start: 20191224
  5. PLAVIX [Concomitant]
     Active Substance: CLOPIDOGREL BISULFATE
     Dosage: UNK
  6. ASPIRIN BP [Concomitant]
     Dosage: UNK
  7. TELMISARTAN. [Concomitant]
     Active Substance: TELMISARTAN
     Indication: HYPERTENSION
     Dosage: UNK, 1X/DAY (AT NIGHT)
  8. LYRICA [Suspect]
     Active Substance: PREGABALIN
     Indication: NEUROPATHY PERIPHERAL
     Dosage: 100 MG, DAILY (50MG IN THE MORNING AND 50MG AT NIGHT)
     Route: 048
  9. CRESTOR [Concomitant]
     Active Substance: ROSUVASTATIN CALCIUM
     Dosage: 20 MG, UNK

REACTIONS (8)
  - Confusional state [Unknown]
  - Intentional product misuse [Unknown]
  - Product prescribing error [Unknown]
  - Drug dependence [Unknown]
  - Fall [Unknown]
  - Seizure [Not Recovered/Not Resolved]
  - Body height decreased [Unknown]
  - Weight increased [Unknown]

NARRATIVE: CASE EVENT DATE: 20191223
